FAERS Safety Report 10576831 (Version 1)
Quarter: 2014Q4

REPORT INFORMATION
  Report Type: Spontaneous
  Country: US (occurrence: US)
  Receive Date: 20141111
  Receipt Date: 20141111
  Transmission Date: 20150529
  Serious: Yes (Other)
  Sender: FDA-Public Use
  Company Number: US-BRISTOL-MYERS SQUIBB COMPANY-21564828

PATIENT
  Sex: Female

DRUGS (1)
  1. METFORMIN HCL [Suspect]
     Active Substance: METFORMIN HYDROCHLORIDE

REACTIONS (10)
  - Cardiovascular disorder [Unknown]
  - Pain [Unknown]
  - Chronic obstructive pulmonary disease [Unknown]
  - Uterine disorder [Unknown]
  - Dizziness [Unknown]
  - Hyperhidrosis [Unknown]
  - Abdominal distension [Unknown]
  - Asthma [Unknown]
  - Skin cosmetic procedure [Unknown]
  - Constipation [Unknown]
